FAERS Safety Report 5743499-0 (Version None)
Quarter: 2008Q2

REPORT INFORMATION
  Report Type: 
  Country: None (occurrence: None)
  Receive Date: 20080519
  Receipt Date: 20080519
  Transmission Date: 20081010
  Serious: Yes (Other)
  Sender: FDA-Public Use
  Company Number: None

PATIENT
  Age: 60 Year
  Sex: Female
  Weight: 53.0709 kg

DRUGS (1)
  1. DIGOXIN [Suspect]
     Indication: HEART RATE INCREASED
     Dosage: 1/2 TABLET DAILY PO
     Route: 048
     Dates: start: 20080308, end: 20080504

REACTIONS (3)
  - PALPITATIONS [None]
  - PHARMACEUTICAL PRODUCT COMPLAINT [None]
  - TACHYCARDIA [None]
